FAERS Safety Report 8529883-0 (Version None)
Quarter: 2012Q3

REPORT INFORMATION
  Report Type: 
  Country: None (occurrence: None)
  Receive Date: 20120723
  Receipt Date: 20120713
  Transmission Date: 20120928
  Serious: Yes (Hospitalization)
  Sender: FDA-Public Use
  Company Number: US-JNJFOC-20120708426

PATIENT
  Sex: Female
  Weight: 133.36 kg

DRUGS (3)
  1. GLUCOPHAGE [Concomitant]
     Indication: DIABETES MELLITUS
     Route: 065
  2. VISTARIL [Concomitant]
     Route: 065
  3. INVEGA SUSTENNA [Suspect]
     Indication: SCHIZOAFFECTIVE DISORDER
     Route: 030
     Dates: start: 20120629

REACTIONS (1)
  - BLOOD GLUCOSE INCREASED [None]
